FAERS Safety Report 23331704 (Version 1)
Quarter: 2023Q4

REPORT INFORMATION
  Report Type: Spontaneous
  Country: US (occurrence: US)
  Receive Date: 20231222
  Receipt Date: 20231222
  Transmission Date: 20240110
  Serious: No
  Sender: FDA-Public Use
  Company Number: US-ABBVIE-5544118

PATIENT
  Age: 67 Year
  Sex: Female

DRUGS (1)
  1. LINZESS [Suspect]
     Active Substance: LINACLOTIDE
     Indication: Constipation
     Dosage: FORM STRENGTH: 145  MILLIGRAM?FREQUENCY TEXT: 1 CAPSULE EVERYDAY FOR 3 DAYS
     Route: 048

REACTIONS (1)
  - Syncope [Recovered/Resolved]
